FAERS Safety Report 6361361-X (Version None)
Quarter: 2009Q3

REPORT INFORMATION
  Report Type: 
  Country: None (occurrence: None)
  Receive Date: 20090918
  Receipt Date: 20090910
  Transmission Date: 20100115
  Serious: Yes (Other)
  Sender: FDA-Public Use
  Company Number: B0593642A

PATIENT
  Sex: Female

DRUGS (9)
  1. AUGMENTIN '125' [Suspect]
     Indication: DRUG USE FOR UNKNOWN INDICATION
     Dosage: 625MG THREE TIMES PER DAY
     Route: 048
     Dates: start: 20081110, end: 20081113
  2. SINTROM [Suspect]
     Indication: DRUG USE FOR UNKNOWN INDICATION
     Dosage: 1MG PER DAY
     Route: 065
     Dates: start: 19920101
  3. CEFUROXIME [Suspect]
     Indication: DRUG USE FOR UNKNOWN INDICATION
     Dosage: 500MG TWICE PER DAY
     Route: 048
     Dates: start: 20081113, end: 20081118
  4. PERENTEROL [Suspect]
     Indication: DIARRHOEA
     Dosage: 250MG TWICE PER DAY
     Route: 048
     Dates: start: 20081111, end: 20081124
  5. DAFALGAN [Suspect]
     Indication: DRUG USE FOR UNKNOWN INDICATION
     Dosage: 1G THREE TIMES PER DAY
     Route: 048
     Dates: start: 20080831
  6. GABAPENTIN [Concomitant]
     Indication: RESTLESSNESS
     Dosage: 200MG PER DAY
     Route: 048
     Dates: start: 20081117, end: 20081210
  7. DIGOXIN [Concomitant]
     Dosage: .125MG PER DAY
     Route: 048
  8. FOSAMAX [Concomitant]
     Dosage: 70MG WEEKLY
     Route: 048
     Dates: start: 20080826
  9. SEROQUEL [Concomitant]
     Dosage: 6.25MG PER DAY
     Route: 048
     Dates: start: 20081103, end: 20081107

REACTIONS (2)
  - INTERNATIONAL NORMALISED RATIO INCREASED [None]
  - LABORATORY TEST INTERFERENCE [None]
